FAERS Safety Report 10133698 (Version 1)
Quarter: 2014Q2

REPORT INFORMATION
  Report Type: Spontaneous
  Country: NL (occurrence: NL)
  Receive Date: 20140428
  Receipt Date: 20140428
  Transmission Date: 20141212
  Serious: Yes (Other)
  Sender: FDA-Public Use
  Company Number: NL-TEVA-477427ISR

PATIENT
  Sex: Female

DRUGS (2)
  1. TAMOXIFEN [Suspect]
     Dosage: DOSE NOT FILLED IN
     Route: 048
  2. ACENOCOUMAROL TABLET 1MG [Concomitant]
     Dosage: DOSE ACCORDING TO PRESCRIPTION THROMBOSIS SERVICE
     Route: 048

REACTIONS (1)
  - Non-alcoholic steatohepatitis [Recovered/Resolved]
